FAERS Safety Report 10079616 (Version 2)
Quarter: 2014Q2

REPORT INFORMATION
  Report Type: Spontaneous
  Country: ES (occurrence: ES)
  Receive Date: 20140415
  Receipt Date: 20140425
  Transmission Date: 20141212
  Serious: Yes (Death)
  Sender: FDA-Public Use
  Company Number: ES-ALLERGAN-1407257US

PATIENT
  Age: 56 Year
  Sex: Female
  Weight: 80 kg

DRUGS (5)
  1. GANFORT [Suspect]
     Indication: GLAUCOMA
     Route: 047
     Dates: start: 2013
  2. SONOVUE [Suspect]
     Indication: ULTRASOUND SCAN
     Dosage: 2.4 ML
     Route: 042
     Dates: start: 20140402, end: 20140402
  3. IXIA [Concomitant]
  4. METFORMINA [Concomitant]
  5. ORFIDAL [Concomitant]

REACTIONS (2)
  - Anaphylactic shock [Fatal]
  - Cardio-respiratory arrest [Fatal]
